FAERS Safety Report 21637503 (Version 1)
Quarter: 2022Q4

REPORT INFORMATION
  Report Type: Spontaneous
  Country: CN (occurrence: CN)
  Receive Date: 20221124
  Receipt Date: 20221124
  Transmission Date: 20230113
  Serious: Yes (Death)
  Sender: FDA-Public Use
  Company Number: CN-STERISCIENCE B.V.-2022-ST-000015

PATIENT
  Age: 64 Year
  Sex: Male

DRUGS (24)
  1. GANCICLOVIR SODIUM [Suspect]
     Active Substance: GANCICLOVIR SODIUM
     Indication: Bacterial infection
     Dosage: 0.35 GRAM, BID
     Route: 042
  2. GANCICLOVIR SODIUM [Suspect]
     Active Substance: GANCICLOVIR SODIUM
     Indication: Newcastle disease
  3. MEROPENEM [Suspect]
     Active Substance: MEROPENEM
     Indication: Bacterial infection
     Dosage: 1 GRAM, BID
     Route: 042
  4. MEROPENEM [Suspect]
     Active Substance: MEROPENEM
     Indication: Newcastle disease
  5. PIPERACILLIN SODIUM\TAZOBACTAM SODIUM [Suspect]
     Active Substance: PIPERACILLIN SODIUM\TAZOBACTAM SODIUM
     Indication: Bacterial infection
     Dosage: UNKNOWN
     Route: 065
  6. PIPERACILLIN SODIUM\TAZOBACTAM SODIUM [Suspect]
     Active Substance: PIPERACILLIN SODIUM\TAZOBACTAM SODIUM
     Indication: Newcastle disease
  7. VANCOMYCIN [Suspect]
     Active Substance: VANCOMYCIN
     Indication: Bacterial infection
     Dosage: 0.5 GRAM, BID
     Route: 042
  8. VANCOMYCIN [Suspect]
     Active Substance: VANCOMYCIN
     Indication: Newcastle disease
  9. CEFOPERAZONE SODIUM\SULBACTAM [Suspect]
     Active Substance: CEFOPERAZONE SODIUM\SULBACTAM
     Indication: Bacterial infection
     Dosage: UNKNOWN
     Route: 065
  10. CEFOPERAZONE SODIUM\SULBACTAM [Suspect]
     Active Substance: CEFOPERAZONE SODIUM\SULBACTAM
     Indication: Newcastle disease
  11. IMIPENEM AND CILASTATIN [Suspect]
     Active Substance: CILASTATIN SODIUM\IMIPENEM
     Indication: Bacterial infection
     Dosage: 1 GRAM, Q8H
     Route: 042
  12. IMIPENEM AND CILASTATIN [Suspect]
     Active Substance: CILASTATIN SODIUM\IMIPENEM
     Indication: Newcastle disease
  13. LEVOFLOXACIN [Suspect]
     Active Substance: LEVOFLOXACIN
     Indication: Bacterial infection
     Dosage: UNKNOWN
     Route: 065
  14. LEVOFLOXACIN [Suspect]
     Active Substance: LEVOFLOXACIN
     Indication: Newcastle disease
  15. METHYLPREDNISOLONE [Suspect]
     Active Substance: METHYLPREDNISOLONE
     Indication: Bacterial infection
     Dosage: 40 MILLIGRAM, BID
     Route: 042
  16. METHYLPREDNISOLONE [Suspect]
     Active Substance: METHYLPREDNISOLONE
     Indication: Newcastle disease
  17. MICAFUNGIN [Suspect]
     Active Substance: MICAFUNGIN
     Indication: Bacterial infection
     Dosage: 100 MILLIGRAM, ONCE
     Route: 042
  18. MICAFUNGIN [Suspect]
     Active Substance: MICAFUNGIN
     Indication: Newcastle disease
  19. MOXIFLOXACIN [Suspect]
     Active Substance: MOXIFLOXACIN
     Indication: Newcastle disease
     Dosage: 0.4 GRAM, ONCE
     Route: 042
  20. MOXIFLOXACIN [Suspect]
     Active Substance: MOXIFLOXACIN
     Indication: Bacterial infection
  21. OSELTAMIVIR [Suspect]
     Active Substance: OSELTAMIVIR
     Indication: Bacterial infection
     Dosage: 75 MILLIGRAM, BID
     Route: 048
  22. OSELTAMIVIR [Suspect]
     Active Substance: OSELTAMIVIR
     Indication: Newcastle disease
  23. UMIFENOVIR [Suspect]
     Active Substance: UMIFENOVIR
     Indication: Bacterial infection
     Dosage: 0.2 GRAM
     Route: 048
  24. UMIFENOVIR [Suspect]
     Active Substance: UMIFENOVIR
     Indication: Newcastle disease

REACTIONS (7)
  - Renal impairment [Fatal]
  - Hepatic function abnormal [Fatal]
  - Metabolic acidosis [Fatal]
  - Respiratory failure [Fatal]
  - Multiple organ dysfunction syndrome [Fatal]
  - Septic shock [Fatal]
  - Drug ineffective [Fatal]
